FAERS Safety Report 19289701 (Version 1)
Quarter: 2021Q2

REPORT INFORMATION
  Report Type: Spontaneous
  Country: DE (occurrence: JP)
  Receive Date: 20210521
  Receipt Date: 20210521
  Transmission Date: 20210717
  Serious: Yes (Other)
  Sender: FDA-Public Use
  Company Number: JP-ELI_LILLY_AND_COMPANY-JP202105008595

PATIENT
  Age: 65 Year
  Sex: Female

DRUGS (3)
  1. ERBITUX [Suspect]
     Active Substance: CETUXIMAB
     Indication: COLON CANCER
     Dosage: UNK, UNKNOWN
     Route: 041
  2. ENCORAFENIB [Concomitant]
     Active Substance: ENCORAFENIB
     Indication: COLON CANCER
     Dosage: UNK
  3. BINIMETINIB [Concomitant]
     Active Substance: BINIMETINIB
     Indication: COLON CANCER
     Dosage: UNK

REACTIONS (1)
  - Cataract [Recovering/Resolving]
